FAERS Safety Report 8594275-5 (Version None)
Quarter: 2012Q3

REPORT INFORMATION
  Report Type: 
  Country: None (occurrence: None)
  Receive Date: 20120815
  Receipt Date: 20120809
  Transmission Date: 20120928
  Serious: Yes (Hospitalization)
  Sender: FDA-Public Use
  Company Number: US-009507513-1208USA004680

PATIENT

DRUGS (2)
  1. VICTRELIS [Suspect]
     Dosage: UNK
     Dates: start: 20120601, end: 20120101
  2. REBETOL [Suspect]

REACTIONS (1)
  - ANAEMIA [None]
